FAERS Safety Report 6975329-3 (Version None)
Quarter: 2010Q3

REPORT INFORMATION
  Report Type: 
  Country: None (occurrence: None)
  Receive Date: 20100910
  Receipt Date: 20090302
  Transmission Date: 20110219
  Serious: No
  Sender: FDA-Public Use
  Company Number: US-WYE-H08422209

PATIENT
  Age: 64 Year
  Sex: Male
  Weight: 99.88 kg

DRUGS (1)
  1. PRISTIQ [Suspect]
     Indication: DEPRESSION
     Route: 048
     Dates: start: 20090223, end: 20090228

REACTIONS (5)
  - FEELING ABNORMAL [None]
  - NIGHTMARE [None]
  - SOMNOLENCE [None]
  - STARING [None]
  - UNEVALUABLE EVENT [None]
